FAERS Safety Report 15575667 (Version 1)
Quarter: 2018Q4

REPORT INFORMATION
  Report Type: Spontaneous
  Country: US (occurrence: US)
  Receive Date: 20181101
  Receipt Date: 20181101
  Transmission Date: 20190205
  Serious: Yes (Hospitalization)
  Sender: FDA-Public Use
  Company Number: None

PATIENT
  Age: 59 Year
  Sex: Female

DRUGS (1)
  1. ENBREL [Suspect]
     Active Substance: ETANERCEPT
     Indication: PRODUCT USED FOR UNKNOWN INDICATION
     Dosage: ?          OTHER FREQUENCY:ONCE EVERY WEEK;?
     Route: 058

REACTIONS (5)
  - Pneumonia [None]
  - Urinary tract infection [None]
  - Malaise [None]
  - Pain in extremity [None]
  - Intentional dose omission [None]

NARRATIVE: CASE EVENT DATE: 20180826
